FAERS Safety Report 4354171-6 (Version None)
Quarter: 2004Q2

REPORT INFORMATION
  Report Type: 
  Country: None (occurrence: None)
  Receive Date: 20040506
  Receipt Date: 20040428
  Transmission Date: 20050107
  Serious: Yes (Death, Hospitalization)
  Sender: FDA-Public Use
  Company Number: PHBS2004JP05856

PATIENT
  Age: 54 Year
  Sex: Male
  Weight: 51 kg

DRUGS (1)
  1. CYCLOSPORINE [Suspect]
     Indication: STEM CELL TRANSPLANT
     Route: 065

REACTIONS (5)
  - ACUTE MYELOID LEUKAEMIA [None]
  - DELAYED ENGRAFTMENT [None]
  - GRAFT VERSUS HOST DISEASE [None]
  - PNEUMONIA [None]
  - RESPIRATORY FAILURE [None]
